FAERS Safety Report 19139681 (Version 1)
Quarter: 2021Q2

REPORT INFORMATION
  Report Type: Spontaneous
  Country: US (occurrence: US)
  Receive Date: 20210415
  Receipt Date: 20210415
  Transmission Date: 20210717
  Serious: Yes (Death, Hospitalization)
  Sender: FDA-Public Use
  Company Number: None

PATIENT
  Age: 35 Month
  Sex: Male
  Weight: 19 kg

DRUGS (7)
  1. G?CSF (FILGRASTIM, AMGEN) [Suspect]
     Active Substance: FILGRASTIM
     Dates: end: 20210223
  2. MESNA. [Suspect]
     Active Substance: MESNA
     Dates: end: 20201226
  3. CYCLOPHOSPHAMIDE. [Suspect]
     Active Substance: CYCLOPHOSPHAMIDE
     Dates: end: 20201226
  4. CARBOPLATIN. [Suspect]
     Active Substance: CARBOPLATIN
     Dates: end: 20210215
  5. ETOPOSIDE (VP?16) [Suspect]
     Active Substance: ETOPOSIDE
     Dates: end: 20210215
  6. MELPHALAN. [Suspect]
     Active Substance: MELPHALAN
     Dates: end: 20210214
  7. THIOTEPA. [Suspect]
     Active Substance: THIOTEPA
     Dates: end: 20201223

REACTIONS (5)
  - Haematemesis [None]
  - Hypotension [None]
  - Gastrointestinal haemorrhage [None]
  - Pulmonary haemorrhage [None]
  - Pyrexia [None]

NARRATIVE: CASE EVENT DATE: 20210221
